FAERS Safety Report 15618672 (Version 2)
Quarter: 2018Q4

REPORT INFORMATION
  Report Type: Spontaneous
  Country: JP (occurrence: JP)
  Receive Date: 20181114
  Receipt Date: 20181126
  Transmission Date: 20190205
  Serious: Yes (Other)
  Sender: FDA-Public Use
  Company Number: JP-SHIRE-2014BAX040041

PATIENT
  Age: 8 Month
  Sex: Male
  Weight: 8.7 kg

DRUGS (12)
  1. ADVATE [Suspect]
     Active Substance: ANTIHEMOPHILIC FACTOR, HUMAN RECOMBINANT
     Indication: HAEMOSTASIS
     Dosage: 500IU (INTERNATIONAL UNIT)1X A DAY
     Route: 042
     Dates: start: 20140522, end: 20140522
  2. ADVATE [Suspect]
     Active Substance: ANTIHEMOPHILIC FACTOR, HUMAN RECOMBINANT
     Dosage: 500IU (INTERNATIONAL UNIT)1X A DAY
     Route: 042
     Dates: start: 20140620, end: 20140620
  3. ADVATE [Suspect]
     Active Substance: ANTIHEMOPHILIC FACTOR, HUMAN RECOMBINANT
     Dosage: 500IU (INTERNATIONAL UNIT)1X A DAY
     Route: 042
     Dates: start: 20140613, end: 20140613
  4. ADVATE [Suspect]
     Active Substance: ANTIHEMOPHILIC FACTOR, HUMAN RECOMBINANT
     Dosage: 500IU (INTERNATIONAL UNIT)1X A DAY
     Route: 042
     Dates: start: 20140617, end: 20140617
  5. ADVATE [Suspect]
     Active Substance: ANTIHEMOPHILIC FACTOR, HUMAN RECOMBINANT
     Indication: EXTRADURAL HAEMATOMA
     Dosage: 500IU (INTERNATIONAL UNIT)2X A DAY
     Route: 042
     Dates: start: 20140502, end: 20140509
  6. ADVATE [Suspect]
     Active Substance: ANTIHEMOPHILIC FACTOR, HUMAN RECOMBINANT
     Indication: IMMUNE TOLERANCE INDUCTION
     Dosage: 500IU (INTERNATIONAL UNIT)1X A DAY
     Route: 042
     Dates: start: 20140530, end: 20140530
  7. ADVATE [Suspect]
     Active Substance: ANTIHEMOPHILIC FACTOR, HUMAN RECOMBINANT
     Dosage: 500IU (INTERNATIONAL UNIT)1X A DAY
     Route: 042
     Dates: start: 20140610, end: 20140610
  8. ADVATE [Suspect]
     Active Substance: ANTIHEMOPHILIC FACTOR, HUMAN RECOMBINANT
     Indication: FACTOR VIII DEFICIENCY
     Dosage: 500IU (INTERNATIONAL UNIT)1X A DAY
     Route: 042
     Dates: start: 20140526, end: 20140526
  9. ADVATE [Suspect]
     Active Substance: ANTIHEMOPHILIC FACTOR, HUMAN RECOMBINANT
     Dosage: 500IU (INTERNATIONAL UNIT)1X A DAY
     Route: 042
     Dates: start: 20140603, end: 20140603
  10. ADVATE [Suspect]
     Active Substance: ANTIHEMOPHILIC FACTOR, HUMAN RECOMBINANT
     Dosage: UNK, 3X A WEEK
     Route: 042
  11. FEIBA NF [Suspect]
     Active Substance: ANTI-INHIBITOR COAGULANT COMPLEX
     Indication: FACTOR VIII INHIBITION
     Dosage: UNK, UNKNOWN
     Route: 065
  12. FEIBA NF [Suspect]
     Active Substance: ANTI-INHIBITOR COAGULANT COMPLEX
     Indication: IMMUNE TOLERANCE INDUCTION

REACTIONS (3)
  - Factor VIII inhibition [Unknown]
  - Muscle haemorrhage [Recovered/Resolved]
  - Haemarthrosis [Recovered/Resolved]

NARRATIVE: CASE EVENT DATE: 20140617
